FAERS Safety Report 25851048 (Version 4)
Quarter: 2025Q4

REPORT INFORMATION
  Report Type: Report from Study
  Country: US (occurrence: US)
  Receive Date: 20250926
  Receipt Date: 20251223
  Transmission Date: 20260118
  Serious: Yes (Other)
  Sender: ACADIA PHARMACEUTICALS
  Company Number: US-ACADIA PHARMACEUTICALS INC.-ACA-2025-PIM-010624

PATIENT
  Sex: Female

DRUGS (2)
  1. NUPLAZID [Suspect]
     Active Substance: PIMAVANSERIN TARTRATE
     Indication: Parkinson^s disease psychosis
     Dosage: 34 MILLIGRAM, QD
     Route: 048
  2. CARBIDOPA [Concomitant]
     Active Substance: CARBIDOPA

REACTIONS (9)
  - Intentional self-injury [Not Recovered/Not Resolved]
  - Hallucination [Not Recovered/Not Resolved]
  - Memory impairment [Unknown]
  - Thinking abnormal [Unknown]
  - General physical health deterioration [Unknown]
  - Fall [Unknown]
  - Confusional state [Unknown]
  - Aggression [Unknown]
  - Drug ineffective [Not Recovered/Not Resolved]
